FAERS Safety Report 7507141-0 (Version None)
Quarter: 2011Q2

REPORT INFORMATION
  Report Type: 
  Country: None (occurrence: None)
  Receive Date: 20110526
  Receipt Date: 20090518
  Transmission Date: 20111010
  Serious: Yes (Hospitalization, Other)
  Sender: FDA-Public Use
  Company Number: US-BAYER-200920911NA

PATIENT
  Sex: Male
  Weight: 114 kg

DRUGS (19)
  1. TRASYLOL [Suspect]
     Indication: CORONARY ARTERY BYPASS
     Dosage: 200 ML, LOADING DOSE
     Route: 042
     Dates: start: 20060522, end: 20060522
  2. RED BLOOD CELLS [Concomitant]
     Dosage: 3 U, UNK
  3. INSULIN [Concomitant]
     Dosage: 15 U EVERY 8 HOURS AS NEEDED, UNK
     Route: 058
     Dates: start: 20060507
  4. VALSARTAN [Concomitant]
     Dosage: UNK
     Route: 048
  5. ISOFLURANE [Concomitant]
     Dosage: UNK
     Dates: start: 20060522, end: 20060522
  6. PROPOFOL [Concomitant]
     Dosage: 40 MG, UNK
     Dates: start: 20060522, end: 20060522
  7. NEURONTIN [Concomitant]
     Dosage: 300 MG, TID
     Route: 048
  8. DILTIAZEM [Concomitant]
     Route: 048
  9. AVANDIA [Concomitant]
     Dosage: 2 MG, BID
     Route: 048
  10. ACETYLSALICYLIC ACID SRT [Concomitant]
     Dosage: 325 MG, UNK
     Route: 048
     Dates: start: 20060507
  11. METOPROLOL TARTRATE [Concomitant]
     Dosage: 25 MG, UNK
     Route: 048
     Dates: start: 20060507
  12. SUFENTANIL CITRATE [Concomitant]
  13. SIMVASTATIN [Concomitant]
     Dosage: 40 MG, HS
     Route: 048
  14. LANTUS [Concomitant]
     Dosage: 50 U, HS
     Route: 058
  15. CLONIDINE [Concomitant]
     Dosage: 0.1 MG, UNK
     Dates: start: 20060507
  16. PROCARDIA XL [Concomitant]
     Dosage: 60 MG, BID
     Route: 048
     Dates: start: 20060509
  17. LABETALOL [Concomitant]
     Dosage: 20 MG, UNK
     Route: 042
     Dates: start: 20060515
  18. CONTRAST MEDIA [Concomitant]
     Indication: CATHETERISATION CARDIAC
     Dosage: UNK
     Dates: start: 20060515
  19. NORVASC [Concomitant]
     Dosage: 10 MG, QD
     Route: 048

REACTIONS (8)
  - RENAL FAILURE [None]
  - FEAR [None]
  - INJURY [None]
  - DEPRESSION [None]
  - ANXIETY [None]
  - UNEVALUABLE EVENT [None]
  - PAIN [None]
  - ANHEDONIA [None]
